FAERS Safety Report 7617088-7 (Version None)
Quarter: 2011Q3

REPORT INFORMATION
  Report Type: 
  Country: None (occurrence: None)
  Receive Date: 20110718
  Receipt Date: 20110705
  Transmission Date: 20111222
  Serious: Yes (Hospitalization, Other)
  Sender: FDA-Public Use
  Company Number: US-ELI_LILLY_AND_COMPANY-US201011000453

PATIENT
  Sex: Female

DRUGS (13)
  1. FORTEO [Suspect]
     Indication: OSTEOPOROSIS
     Dosage: 20 UG, DAILY (1/D)
     Dates: start: 20101001
  2. FORTEO [Suspect]
     Dosage: 20 UG, DAILY (1/D)
  3. FORTEO [Suspect]
     Dosage: 20 UG, DAILY (1/D)
  4. FORTEO [Suspect]
     Dosage: 20 UG, QD
     Dates: end: 20110521
  5. CELEBREX [Concomitant]
     Indication: ARTHRITIS
     Dosage: UNK, PRN
  6. CALCIUM CARBONATE [Concomitant]
  7. XALATAN [Concomitant]
     Indication: GLAUCOMA
  8. MULTI-VITAMIN [Concomitant]
  9. VITAMIN D [Concomitant]
  10. WATER PILLS [Concomitant]
  11. ELESTAT [Concomitant]
     Indication: MULTIPLE ALLERGIES
  12. FORTEO [Suspect]
     Dosage: 20 UG, DAILY (1/D)
  13. VITAMIN B-12 [Concomitant]

REACTIONS (16)
  - MUSCLE STRAIN [None]
  - FATIGUE [None]
  - SPIDER VEIN [None]
  - CONSTIPATION [None]
  - FALL [None]
  - SOMNOLENCE [None]
  - HEADACHE [None]
  - INJECTION SITE PAIN [None]
  - MEDICATION ERROR [None]
  - BONE PAIN [None]
  - INJECTION SITE HAEMATOMA [None]
  - TOOTH DISORDER [None]
  - BOWEL MOVEMENT IRREGULARITY [None]
  - HYPERSENSITIVITY [None]
  - HIP FRACTURE [None]
  - MYALGIA [None]
